FAERS Safety Report 16693221 (Version 1)
Quarter: 2019Q4

REPORT INFORMATION
  Report Type: Spontaneous
  Country: US (occurrence: US)
  Receive Date: 20190811
  Receipt Date: 20190811
  Transmission Date: 20200122
  Serious: Yes (Other)
  Sender: FDA-Public Use
  Company Number: None

PATIENT
  Age: 40 Year
  Sex: Male
  Weight: 81 kg

DRUGS (1)
  1. MAVYRET [Suspect]
     Active Substance: GLECAPREVIR\PIBRENTASVIR
     Indication: HEPATITIS C
     Dosage: ?          QUANTITY:3 TABLET(S);?
     Route: 048

REACTIONS (5)
  - Anxiety [None]
  - Fatigue [None]
  - Diarrhoea [None]
  - Depression [None]
  - Headache [None]

NARRATIVE: CASE EVENT DATE: 20190811
